FAERS Safety Report 20603343 (Version 1)
Quarter: 2022Q1

REPORT INFORMATION
  Report Type: Spontaneous
  Country: FR (occurrence: FR)
  Receive Date: 20220316
  Receipt Date: 20220316
  Transmission Date: 20220424
  Serious: Yes (Hospitalization)
  Sender: FDA-Public Use
  Company Number: None

PATIENT
  Age: 69 Year
  Sex: Female
  Weight: 81.8 kg

DRUGS (11)
  1. VENLAFAXINE HCL [Interacting]
     Active Substance: VENLAFAXINE HYDROCHLORIDE
     Indication: Anxiety
     Dosage: IN THE EVENING
     Route: 048
     Dates: end: 202201
  2. VENLAFAXINE HCL [Interacting]
     Active Substance: VENLAFAXINE HYDROCHLORIDE
     Dosage: 1 TABLET OF 37.5 MG IN THE MORNING AND 1 TABLET OF 75 MG IN THE EVENING
     Route: 048
     Dates: start: 202201
  3. CLOZAPINE [Interacting]
     Active Substance: CLOZAPINE
     Indication: Dementia with Lewy bodies
     Dosage: 1.5 TABLET OF 25 MG IN THE EVENING
     Route: 048
     Dates: end: 20220223
  4. CLOZAPINE [Interacting]
     Active Substance: CLOZAPINE
     Dosage: 12.5 MG
     Route: 048
     Dates: start: 20220223
  5. TAFINLAR [Interacting]
     Active Substance: DABRAFENIB MESYLATE
     Indication: Metastatic malignant melanoma
     Dosage: 150 MG, 2X/DAY (2 CAPSULES IN THE MORNING AND 2 CAPSULES IN THE EVENING)
     Route: 048
     Dates: start: 20220218, end: 20220223
  6. MEKINIST [Interacting]
     Active Substance: TRAMETINIB DIMETHYL SULFOXIDE
     Indication: Metastatic malignant melanoma
     Dosage: IN THE MORNING
     Route: 048
     Dates: start: 20220218, end: 20220223
  7. BENSERAZIDE HYDROCHLORIDE\LEVODOPA [Concomitant]
     Active Substance: BENSERAZIDE HYDROCHLORIDE\LEVODOPA
     Indication: Dementia with Lewy bodies
     Dosage: 1 DF AT 8 AM, AT NOON, 4 PM, AND 8 PM
  8. ESOMEPRAZOLE [Concomitant]
     Active Substance: ESOMEPRAZOLE
     Indication: Gastrooesophageal reflux disease
     Dosage: 20 MG
  9. PERINDOPRIL [Concomitant]
     Active Substance: PERINDOPRIL
     Indication: Hypertension
     Dosage: 2 MG
  10. BENSERAZIDE HYDROCHLORIDE\LEVODOPA [Concomitant]
     Active Substance: BENSERAZIDE HYDROCHLORIDE\LEVODOPA
     Indication: Dementia with Lewy bodies
     Dosage: 1 DF AT 8 AM, AT NOON, 4 PM, AND 8 PM
  11. LEVOTHYROXINE SODIUM [Concomitant]
     Active Substance: LEVOTHYROXINE SODIUM
     Indication: Hypothyroidism
     Dosage: 100 UG
     Route: 048

REACTIONS (2)
  - Drug interaction [Recovering/Resolving]
  - Confusional state [Recovering/Resolving]

NARRATIVE: CASE EVENT DATE: 20220220
